FAERS Safety Report 9659519 (Version 3)
Quarter: 2014Q1

REPORT INFORMATION
  Report Type: Report from Study
  Country: JP (occurrence: JP)
  Receive Date: 20131031
  Receipt Date: 20140224
  Transmission Date: 20141002
  Serious: Yes (Life-Threatening)
  Sender: FDA-Public Use
  Company Number: PHHY2013JP122324

PATIENT
  Age: 79 Year
  Sex: Male

DRUGS (5)
  1. AMN107 [Suspect]
     Indication: CHRONIC MYELOID LEUKAEMIA
     Dosage: 200 MG, BID
     Route: 048
     Dates: start: 20090925, end: 20100122
  2. AMN107 [Suspect]
     Dosage: 300 MG, BID
     Route: 048
     Dates: start: 20100123, end: 20100216
  3. AMN107 [Suspect]
     Dosage: 400 MG, BID
     Route: 048
     Dates: start: 20100217
  4. ACINON [Concomitant]
     Indication: PROPHYLAXIS
     Dosage: 150 MG
     Route: 048
     Dates: start: 20090925
  5. AMLODIN [Concomitant]
     Dosage: 5 MG
     Route: 048
     Dates: start: 20090925, end: 20100831

REACTIONS (2)
  - Acute myocardial infarction [Recovered/Resolved]
  - Musculoskeletal pain [Unknown]
